FAERS Safety Report 8318105-1 (Version None)
Quarter: 2012Q2

REPORT INFORMATION
  Report Type: 
  Country: None (occurrence: None)
  Receive Date: 20120427
  Receipt Date: 20120412
  Transmission Date: 20120825
  Serious: Yes (Other)
  Sender: FDA-Public Use
  Company Number: CL-ROCHE-1060011

PATIENT
  Sex: Female
  Weight: 58 kg

DRUGS (2)
  1. AVASTIN [Suspect]
     Indication: COLON CANCER
     Route: 042
     Dates: start: 20111120, end: 20120313
  2. XELODA [Suspect]
     Indication: COLON CANCER
     Dosage: 1000MG IN THE MORNING AND 1500MG AT NIGHT FOR 14 DAYS.
     Route: 048
     Dates: start: 20111110, end: 20120326

REACTIONS (1)
  - METASTASES TO LIVER [None]
